FAERS Safety Report 4677870-5 (Version None)
Quarter: 2005Q2

REPORT INFORMATION
  Report Type: 
  Country: None (occurrence: None)
  Receive Date: 20050531
  Receipt Date: 20050526
  Transmission Date: 20051028
  Serious: Yes (Disabling, Other)
  Sender: FDA-Public Use
  Company Number: US-GLAXOSMITHKLINE-A0560323A

PATIENT
  Age: 14 Year
  Sex: Male

DRUGS (1)
  1. PAXIL [Suspect]
     Indication: ILL-DEFINED DISORDER
     Dosage: 60MG PER DAY
     Route: 048
     Dates: start: 20050331

REACTIONS (1)
  - DRUG INEFFECTIVE [None]
